FAERS Safety Report 5346896-0 (Version None)
Quarter: 2007Q2

REPORT INFORMATION
  Report Type: 
  Country: None (occurrence: None)
  Receive Date: 20070501
  Receipt Date: 20060523
  Transmission Date: 20071010
  Serious: Yes (Other)
  Sender: FDA-Public Use
  Company Number: 006006

PATIENT
  Sex: Female

DRUGS (3)
  1. CENESTIN [Suspect]
     Dosage: ORAL
     Route: 048
     Dates: start: 19990601, end: 20010101
  2. PREMPRO [Suspect]
     Dosage: ORAL
     Route: 048
     Dates: start: 19990601, end: 20010101
  3. PROMETRIUM [Suspect]
     Dosage: ORAL
     Route: 048
     Dates: start: 19990601, end: 20010101

REACTIONS (1)
  - BREAST CANCER [None]
